FAERS Safety Report 17801318 (Version 1)
Quarter: 2020Q2

REPORT INFORMATION
  Report Type: Spontaneous
  Country: DE (occurrence: DE)
  Receive Date: 20200519
  Receipt Date: 20200519
  Transmission Date: 20200714
  Serious: Yes (Death, Other)
  Sender: FDA-Public Use
  Company Number: DE-B.I. PHARMACEUTICALS,INC./RIDGEFIELD-2020-12-024606

PATIENT
  Age: 38 Year
  Sex: Female
  Weight: 71 kg

DRUGS (3)
  1. L-THYROXIN [LEVOTHYROXINE SODIUM] [Concomitant]
     Active Substance: LEVOTHYROXINE SODIUM
     Indication: HYPOTHYROIDISM
     Dosage: 100 [?G/D ]
     Route: 048
  2. PENTALONG [Concomitant]
     Active Substance: PENTAERYTHRITOL TETRANITRATE
     Indication: FOETAL GROWTH RESTRICTION
     Route: 048
  3. SIFROL [Suspect]
     Active Substance: PRAMIPEXOLE
     Indication: RESTLESS LEGS SYNDROME
     Dosage: 0.7 [MG/D ]
     Route: 048
     Dates: start: 20181002, end: 20190306

REACTIONS (6)
  - Foetal death [Fatal]
  - Maternal exposure during pregnancy [Unknown]
  - Stillbirth [Fatal]
  - Foetal growth restriction [Not Recovered/Not Resolved]
  - Placental insufficiency [Not Recovered/Not Resolved]
  - Ultrasound uterus abnormal [Not Recovered/Not Resolved]
